FAERS Safety Report 10482790 (Version 1)
Quarter: 2014Q3

REPORT INFORMATION
  Report Type: Spontaneous
  Country: CH (occurrence: CH)
  Receive Date: 20140929
  Receipt Date: 20140929
  Transmission Date: 20150326
  Serious: Yes (Hospitalization)
  Sender: FDA-Public Use
  Company Number: CH-ASTRAZENECA-2014SE70345

PATIENT
  Sex: Female

DRUGS (3)
  1. ATACAND [Suspect]
     Active Substance: CANDESARTAN CILEXETIL
     Route: 048
  2. CIPROXIN [Concomitant]
     Active Substance: CIPROFLOXACIN
  3. FLAGYL [Concomitant]
     Active Substance: METRONIDAZOLE\METRONIDAZOLE HYDROCHLORIDE

REACTIONS (5)
  - Angioedema [Unknown]
  - Dizziness [Unknown]
  - Nausea [Unknown]
  - Tremor [Unknown]
  - Fungal infection [Unknown]
